FAERS Safety Report 12308863 (Version 1)
Quarter: 2016Q2

REPORT INFORMATION
  Report Type: Spontaneous
  Country: None (occurrence: None)
  Receive Date: 20160426
  Receipt Date: 20160426
  Transmission Date: 20160815
  Serious: Yes (Other)
  Sender: FDA-Public Use
  Company Number: None

PATIENT
  Sex: Female

DRUGS (1)
  1. TRILEPTAL [Suspect]
     Active Substance: OXCARBAZEPINE

REACTIONS (4)
  - Product quality issue [None]
  - Seizure [None]
  - Drug effect decreased [None]
  - Anticonvulsant drug level below therapeutic [None]
